FAERS Safety Report 5622965-2 (Version None)
Quarter: 2008Q1

REPORT INFORMATION
  Report Type: 
  Country: None (occurrence: None)
  Receive Date: 20080206
  Receipt Date: 20080131
  Transmission Date: 20080703
  Serious: Yes (Life-Threatening, Hospitalization)
  Sender: FDA-Public Use
  Company Number: 2008SP002372

PATIENT
  Age: 55 Year
  Sex: Male

DRUGS (6)
  1. TEMODAL [Suspect]
     Indication: BRAIN NEOPLASM MALIGNANT
     Dosage: 130 MG; QD; PO
     Route: 048
     Dates: start: 20070122, end: 20070228
  2. DEPAKENE [Suspect]
     Indication: CONVULSION
     Dosage: 500 MG; BID; PO
     Route: 048
     Dates: start: 20061201
  3. NEOSIDANTOINA                        (PHENYTOIN SODIUM) [Suspect]
     Indication: CONVULSION
     Dosage: 100 MG; BID; PO
     Route: 048
     Dates: start: 20061125, end: 20070303
  4. SEPTRIN FORTE [Concomitant]
  5. OMEPRAZOLE [Concomitant]
  6. DEXAMETHASONE TAB [Concomitant]

REACTIONS (2)
  - BRAIN NEOPLASM MALIGNANT [None]
  - TOXIC EPIDERMAL NECROLYSIS [None]
